FAERS Safety Report 6992380-8 (Version None)
Quarter: 2010Q3

REPORT INFORMATION
  Report Type: 
  Country: None (occurrence: None)
  Receive Date: 20100915
  Receipt Date: 20100903
  Transmission Date: 20110219
  Serious: Yes (Hospitalization, Congenital Anomaly)
  Sender: FDA-Public Use
  Company Number: 2010MA002387

PATIENT
  Sex: Male
  Weight: 2.8 kg

DRUGS (7)
  1. PROPRANOLOL HCL [Suspect]
     Indication: DRUG EXPOSURE DURING PREGNANCY
     Dosage: ;TRPL
     Route: 064
  2. SERTRALINE HYDROCHLORIDE [Suspect]
     Indication: DRUG EXPOSURE DURING PREGNANCY
     Dosage: ;TRPL
     Route: 064
  3. LANSOPRAZOLE [Suspect]
     Indication: DRUG EXPOSURE DURING PREGNANCY
     Dosage: ;TRPL
  4. LAMOTRIGINE [Suspect]
     Indication: DRUG EXPOSURE DURING PREGNANCY
     Dosage: 400 MG; BID;TRPL
     Route: 064
     Dates: start: 20040101
  5. DIHYDROCODEINE COMPOUND [Suspect]
     Indication: DRUG EXPOSURE DURING PREGNANCY
     Dosage: ; TRPL
     Route: 064
  6. ARIPIPRAZOLE [Suspect]
     Indication: DRUG EXPOSURE DURING PREGNANCY
     Dosage: ;TRPL
  7. NORETHINDRONE [Suspect]
     Indication: DRUG EXPOSURE DURING PREGNANCY
     Dosage: ; TRPL
     Route: 064

REACTIONS (4)
  - ATRIAL SEPTAL DEFECT [None]
  - MATERNAL DRUGS AFFECTING FOETUS [None]
  - PREMATURE BABY [None]
  - VENTRICULAR SEPTAL DEFECT [None]
